FAERS Safety Report 9259446 (Version 1)
Quarter: 2013Q2

REPORT INFORMATION
  Report Type: Spontaneous
  Country: US (occurrence: US)
  Receive Date: 20130428
  Receipt Date: 20130428
  Transmission Date: 20140414
  Serious: No
  Sender: FDA-Public Use
  Company Number: US-BAYER-2013-053059

PATIENT
  Sex: 0

DRUGS (3)
  1. ALEVE CAPLET [Suspect]
  2. COLD-EEZE [ALLIUM SATIVUM,ECHINACEA SPP.] [Concomitant]
  3. THERAFLU [Concomitant]

REACTIONS (1)
  - Drug ineffective [None]
